FAERS Safety Report 17477775 (Version 1)
Quarter: 2020Q1

REPORT INFORMATION
  Report Type: Spontaneous
  Country: GB (occurrence: GB)
  Receive Date: 20200228
  Receipt Date: 20200228
  Transmission Date: 20200409
  Serious: Yes (Other)
  Sender: FDA-Public Use
  Company Number: GB-MYLANLABS-2020M1021452

PATIENT
  Age: 41 Year
  Sex: Female
  Weight: 69.39 kg

DRUGS (7)
  1. MONTELUKAST SODIUM. [Concomitant]
     Active Substance: MONTELUKAST SODIUM
  2. FOSTAIR [Concomitant]
     Active Substance: BECLOMETHASONE\FORMOTEROL
     Dosage: UNK
  3. TOPIRAMATE. [Suspect]
     Active Substance: TOPIRAMATE
     Indication: HEADACHE
     Dosage: 50 MILLIGRAM
     Route: 048
  4. NASONEX [Concomitant]
     Active Substance: MOMETASONE FUROATE
  5. CETIRIZINE DIHYDROCHLORIDE [Concomitant]
     Active Substance: CETIRIZINE HYDROCHLORIDE
  6. COLESEVELAM [Concomitant]
     Active Substance: COLESEVELAM
  7. MST CONTINUS [Concomitant]
     Active Substance: MORPHINE SULFATE

REACTIONS (4)
  - Anxiety [Recovered/Resolved]
  - Nausea [Recovering/Resolving]
  - Depressed mood [Recovered/Resolved]
  - Breath odour [Recovering/Resolving]
